FAERS Safety Report 15604318 (Version 1)
Quarter: 2018Q4

REPORT INFORMATION
  Report Type: Spontaneous
  Country: FR (occurrence: FR)
  Receive Date: 20181110
  Receipt Date: 20181110
  Transmission Date: 20190205
  Serious: Yes (Hospitalization)
  Sender: FDA-Public Use
  Company Number: FR-ACCORD-091313

PATIENT
  Age: 80 Year
  Sex: Female
  Weight: 76.5 kg

DRUGS (1)
  1. METHOTREXATE. [Suspect]
     Active Substance: METHOTREXATE
     Indication: SYSTEMIC LUPUS ERYTHEMATOSUS
     Route: 041
     Dates: start: 201710, end: 20180228

REACTIONS (5)
  - Bicytopenia [Recovered/Resolved]
  - Epistaxis [Recovered/Resolved]
  - Epstein-Barr virus infection [Recovered/Resolved]
  - Haematoma [Recovered/Resolved]
  - Off label use [Unknown]

NARRATIVE: CASE EVENT DATE: 201802
